FAERS Safety Report 19005998 (Version 1)
Quarter: 2021Q1

REPORT INFORMATION
  Report Type: Spontaneous
  Country: PL (occurrence: PL)
  Receive Date: 20210314
  Receipt Date: 20210314
  Transmission Date: 20210420
  Serious: Yes (Life-Threatening, Other)
  Sender: FDA-Public Use
  Company Number: PL-B.I. PHARMACEUTICALS,INC./RIDGEFIELD-2021-BI-089725

PATIENT
  Age: 82 Year
  Sex: Female
  Weight: 90 kg

DRUGS (2)
  1. PRADAXA [Suspect]
     Active Substance: DABIGATRAN ETEXILATE MESYLATE
     Indication: ATRIAL FIBRILLATION
     Dosage: DOSE: 2 X 150; DOSE UNIT: NOT SPECIFIED
     Route: 048
     Dates: start: 20200212, end: 20200215
  2. PRADAXA [Suspect]
     Active Substance: DABIGATRAN ETEXILATE MESYLATE
     Indication: ATRIAL FLUTTER

REACTIONS (2)
  - Hepatorenal syndrome [Recovering/Resolving]
  - Liver injury [Recovering/Resolving]
